FAERS Safety Report 18001703 (Version 3)
Quarter: 2020Q3

REPORT INFORMATION
  Report Type: Report from Study
  Country: IT (occurrence: IT)
  Receive Date: 20200709
  Receipt Date: 20200720
  Transmission Date: 20201103
  Serious: Yes (Life-Threatening, Other)
  Sender: FDA-Public Use
  Company Number: IT-PFIZER INC-2020260316

PATIENT
  Age: 72 Year
  Sex: Male

DRUGS (4)
  1. TRIATEC (RAMIPRIL) [Suspect]
     Active Substance: RAMIPRIL
     Dosage: 2.5 MG 15 DF TOTAL
     Route: 048
     Dates: start: 20191206, end: 20191206
  2. LAROXYL [Suspect]
     Active Substance: AMITRIPTYLINE HYDROCHLORIDE
     Dosage: 40 MG/ML (1 DF)
     Route: 048
     Dates: start: 20191206, end: 20191206
  3. LYRICA [Suspect]
     Active Substance: PREGABALIN
     Dosage: 14 DF TOTAL
     Route: 048
     Dates: start: 20191206, end: 20191206
  4. NEURONTIN [Suspect]
     Active Substance: GABAPENTIN
     Dosage: 300 MG 90 DF TOTAL
     Route: 048
     Dates: start: 20191206, end: 20191206

REACTIONS (5)
  - Intentional self-injury [Recovered/Resolved]
  - Loss of consciousness [Recovered/Resolved]
  - Intentional product misuse [Unknown]
  - Drug abuse [Unknown]
  - Intentional overdose [Unknown]

NARRATIVE: CASE EVENT DATE: 20191206
